FAERS Safety Report 14718128 (Version 2)
Quarter: 2018Q3

REPORT INFORMATION
  Report Type: Spontaneous
  Country: US (occurrence: US)
  Receive Date: 20180404
  Receipt Date: 20180917
  Transmission Date: 20181010
  Serious: No
  Sender: FDA-Public Use
  Company Number: US-SA-2018SA039299

PATIENT
  Age: 48 Year
  Sex: Male
  Weight: 99.32 kg

DRUGS (2)
  1. DUPIXENT [Suspect]
     Active Substance: DUPILUMAB
     Indication: DERMATITIS ATOPIC
     Dosage: 300 MG,QOW
     Route: 058
     Dates: start: 201709
  2. DUPIXENT [Suspect]
     Active Substance: DUPILUMAB
     Dosage: 300 MG, QD
     Route: 058
     Dates: start: 201802

REACTIONS (7)
  - Dizziness [Unknown]
  - Ocular hyperaemia [Unknown]
  - Headache [Unknown]
  - Hypertension [Unknown]
  - Eye pruritus [Unknown]
  - Injection site pruritus [Unknown]
  - Dry eye [Unknown]

NARRATIVE: CASE EVENT DATE: 20180127
